FAERS Safety Report 9238924 (Version 3)
Quarter: 2013Q2

REPORT INFORMATION
  Report Type: Report from Study
  Country: NL (occurrence: NL)
  Receive Date: 20130418
  Receipt Date: 20130531
  Transmission Date: 20140414
  Serious: Yes (Hospitalization)
  Sender: FDA-Public Use
  Company Number: NL-ROCHE-1215644

PATIENT
  Age: 64 Year
  Sex: Female

DRUGS (4)
  1. EPIRUBICIN [Suspect]
     Indication: GASTRIC CANCER
     Dosage: LAST DOSE PRIOR TO SAE: 24/APR/2013
     Route: 042
     Dates: start: 20130313
  2. CAPECITABINE [Suspect]
     Indication: GASTRIC CANCER
     Dosage: BID FOR 2WEEKS, 3 WEEKS, LAST DOSE PRIOR TO SAE: 07/MAY/2013
     Route: 048
     Dates: start: 20130313
  3. CISPLATIN [Suspect]
     Indication: GASTRIC CANCER
     Dosage: LAST DOSE PRIOR TO SAE: 24/APR/2013
     Route: 042
     Dates: start: 20130313
  4. LOSEC MUPS [Concomitant]
     Route: 065

REACTIONS (3)
  - Nausea [Recovered/Resolved]
  - Vomiting [Recovered/Resolved]
  - Abdominal symptom [Recovering/Resolving]
